FAERS Safety Report 18584102 (Version 1)
Quarter: 2020Q4

REPORT INFORMATION
  Report Type: Spontaneous
  Country: FR (occurrence: FR)
  Receive Date: 20201207
  Receipt Date: 20201207
  Transmission Date: 20210114
  Serious: Yes (Other)
  Sender: FDA-Public Use
  Company Number: FR-AUROBINDO-AUR-APL-2020-059481

PATIENT
  Age: 68 Year
  Sex: Female
  Weight: 96 kg

DRUGS (2)
  1. LOVENOX [Suspect]
     Active Substance: ENOXAPARIN SODIUM
     Indication: THROMBOSIS PROPHYLAXIS
     Dosage: 4000 INTERNATIONAL UNIT, ONCE A DAY
     Route: 058
     Dates: start: 20200731, end: 20200828
  2. GABAPENTIN ARROW [Suspect]
     Active Substance: GABAPENTIN
     Indication: GAIT DISTURBANCE
     Dosage: 900 MILLIGRAM, ONCE A DAY
     Route: 048
     Dates: start: 20200731, end: 20200904

REACTIONS (1)
  - Thrombocytopenia [Recovered/Resolved]

NARRATIVE: CASE EVENT DATE: 20200828
